FAERS Safety Report 20658165 (Version 2)
Quarter: 2022Q2

REPORT INFORMATION
  Report Type: Report from Study
  Country: US (occurrence: US)
  Receive Date: 20220331
  Receipt Date: 20220414
  Transmission Date: 20220721
  Serious: Yes (Hospitalization, Other)
  Sender: FDA-Public Use
  Company Number: US-ALLERGAN-2210222US

PATIENT
  Sex: Male

DRUGS (8)
  1. BRIMONIDINE [Suspect]
     Active Substance: BRIMONIDINE TARTRATE
     Indication: Angle closure glaucoma
     Dosage: 2 GTT, TID
     Route: 047
     Dates: start: 2015
  2. BYSTOLIC [Concomitant]
     Active Substance: NEBIVOLOL HYDROCHLORIDE
     Indication: Hypertension
     Dosage: 5 MG
     Route: 048
     Dates: start: 20200922
  3. KETOROLAC TROMETHAMINE [Concomitant]
     Active Substance: KETOROLAC TROMETHAMINE
     Dosage: UNK, QID
  4. PREDNISOLONE ACETATE [Concomitant]
     Active Substance: PREDNISOLONE ACETATE
     Dosage: UNK, QID
  5. REFRESH CLASSIC [Concomitant]
     Active Substance: POLYVINYL ALCOHOL\POVIDONE
     Dosage: UNK, PRN
  6. TIMOLOL MALEATE [Concomitant]
     Active Substance: TIMOLOL MALEATE
     Dosage: UNK, BID
  7. DORZOLAMIDE [Concomitant]
     Active Substance: DORZOLAMIDE
     Dosage: UNK UNK, TID
     Route: 047
  8. LATANOPROST [Concomitant]
     Active Substance: LATANOPROST
     Dosage: 1 GTT, QPM

REACTIONS (8)
  - Corneal transplant [Unknown]
  - Macular oedema [Unknown]
  - Medical device removal [Unknown]
  - Corneal transplant [Unknown]
  - Cystoid macular oedema [Unknown]
  - Glaucoma surgery [Unknown]
  - Keratoplasty [Unknown]
  - Glaucoma surgery [Unknown]

NARRATIVE: CASE EVENT DATE: 20150722
